FAERS Safety Report 9162512 (Version 1)
Quarter: 2013Q1

REPORT INFORMATION
  Report Type: Spontaneous
  Country: US (occurrence: US)
  Receive Date: 20130314
  Receipt Date: 20130314
  Transmission Date: 20140127
  Serious: No
  Sender: FDA-Public Use
  Company Number: US-PFIZER INC-2013083813

PATIENT
  Age: 48 Year
  Sex: Male

DRUGS (4)
  1. LYRICA [Suspect]
     Dosage: 50 MG, 3X/DAY (1 CAPSULE)
  2. GLIPIZIDE [Concomitant]
     Dosage: UNK
  3. METFORMIN [Concomitant]
     Dosage: UNK
  4. ASPIRIN [Concomitant]
     Dosage: UNK

REACTIONS (1)
  - Malaise [Unknown]
